FAERS Safety Report 8399140-4 (Version None)
Quarter: 2012Q2

REPORT INFORMATION
  Report Type: 
  Country: None (occurrence: None)
  Receive Date: 20120531
  Receipt Date: 20120524
  Transmission Date: 20120825
  Serious: No
  Sender: FDA-Public Use
  Company Number: US-PFIZER INC-2012079871

PATIENT
  Sex: Male
  Weight: 85.714 kg

DRUGS (2)
  1. ALAVERT [Suspect]
     Indication: HYPERSENSITIVITY
     Dosage: 10 MG, 2X/DAY
     Dates: start: 20120323, end: 20120325
  2. ALAVERT [Suspect]
     Indication: SNEEZING
     Dosage: 10 MG, 1X/DAY
     Route: 048
     Dates: start: 20120301, end: 20120323

REACTIONS (6)
  - DRUG INEFFECTIVE [None]
  - LACRIMATION INCREASED [None]
  - CHILLS [None]
  - SNEEZING [None]
  - FEELING COLD [None]
  - ADVERSE DRUG REACTION [None]
